FAERS Safety Report 9170932 (Version 3)
Quarter: 2013Q2

REPORT INFORMATION
  Report Type: Spontaneous
  Country: US (occurrence: US)
  Receive Date: 20130319
  Receipt Date: 20130520
  Transmission Date: 20140414
  Serious: Yes (Hospitalization)
  Sender: FDA-Public Use
  Company Number: US-VERTEX PHARMACEUTICALS INC.-2013-003704

PATIENT
  Age: 54 Year
  Sex: Male
  Weight: 109 kg

DRUGS (8)
  1. INCIVEK [Suspect]
     Indication: HEPATITIS C
     Dosage: 750 MG, TID
     Route: 048
     Dates: start: 20130118, end: 20130317
  2. INTERFERON [Suspect]
     Indication: HEPATITIS C
     Dosage: 180 ?G, QW
     Route: 058
     Dates: start: 20130118, end: 20130315
  3. RIBAVIRIN [Suspect]
     Indication: HEPATITIS C
     Dosage: 200 MG, BID
     Route: 048
     Dates: start: 20130118, end: 20130317
  4. ASPIRIN [Concomitant]
     Dosage: 81 MG, QD
  5. MULTIVITAMIN [Concomitant]
     Dosage: 1 DF, QD
     Route: 048
  6. MILK THISTLE [Concomitant]
     Dosage: 2 DF, QW
  7. MILK THISTLE [Concomitant]
     Dosage: 2 DF, QD
     Route: 048
  8. SAW PALMETTO [Concomitant]
     Dosage: 1 DF, QD
     Route: 048

REACTIONS (5)
  - Erythema multiforme [Recovered/Resolved]
  - Insomnia [Not Recovered/Not Resolved]
  - Dermatitis [Not Recovered/Not Resolved]
  - Pruritus [Not Recovered/Not Resolved]
  - Anal pruritus [Recovered/Resolved]
